FAERS Safety Report 25515285 (Version 1)
Quarter: 2025Q3

REPORT INFORMATION
  Report Type: Spontaneous
  Country: EU (occurrence: EU)
  Receive Date: 20250704
  Receipt Date: 20250704
  Transmission Date: 20251021
  Serious: Yes (Death, Other)
  Sender: RANBAXY
  Company Number: EU-SUN PHARMACEUTICAL INDUSTRIES LTD-2025R1-515131

PATIENT
  Age: 66 Year
  Sex: Female

DRUGS (11)
  1. ERTAPENEM [Suspect]
     Active Substance: ERTAPENEM
     Indication: Pyrexia
     Route: 065
  2. ERTAPENEM [Suspect]
     Active Substance: ERTAPENEM
     Indication: Malaise
  3. ERTAPENEM [Suspect]
     Active Substance: ERTAPENEM
     Indication: Pain
  4. VANCOMYCIN [Suspect]
     Active Substance: VANCOMYCIN
     Indication: Antibiotic therapy
     Route: 065
  5. MEROPENEM [Suspect]
     Active Substance: MEROPENEM
     Indication: Pyrexia
     Route: 065
  6. MEROPENEM [Suspect]
     Active Substance: MEROPENEM
     Indication: Malaise
  7. MEROPENEM [Suspect]
     Active Substance: MEROPENEM
     Indication: Pain
  8. SULFAMETHOXAZOLE\TRIMETHOPRIM [Suspect]
     Active Substance: SULFAMETHOXAZOLE\TRIMETHOPRIM
     Indication: Antibiotic therapy
     Route: 065
  9. METRONIDAZOLE [Suspect]
     Active Substance: METRONIDAZOLE
     Indication: Antibiotic therapy
     Route: 065
  10. DOXYCYCLINE [Suspect]
     Active Substance: DOXYCYCLINE
     Indication: Antibiotic therapy
     Route: 065
  11. DAPTOMYCIN [Suspect]
     Active Substance: DAPTOMYCIN
     Indication: Antibiotic therapy
     Route: 065

REACTIONS (1)
  - Condition aggravated [Fatal]
